FAERS Safety Report 4819754-5 (Version None)
Quarter: 2005Q4

REPORT INFORMATION
  Report Type: 
  Country: None (occurrence: None)
  Receive Date: 20051102
  Receipt Date: 20051021
  Transmission Date: 20060501
  Serious: Yes (Other)
  Sender: FDA-Public Use
  Company Number: 2005145783

PATIENT
  Age: 53 Year
  Sex: Female
  Weight: 67.586 kg

DRUGS (17)
  1. LIPITOR [Suspect]
     Indication: BLOOD CHOLESTEROL INCREASED
     Dosage: 10 MG (10 MG, 1 IN 1 D), ORAL
     Route: 048
     Dates: start: 20000101, end: 20050801
  2. LIPITOR [Suspect]
     Indication: BLOOD TRIGLYCERIDES INCREASED
     Dosage: 10 MG (10 MG, 1 IN 1 D), ORAL
     Route: 048
     Dates: start: 20000101, end: 20050801
  3. GABAPENTIN [Suspect]
     Indication: CONVULSION
     Dosage: 3200 MG (800 MG, 4 IN 1 D), ORAL
     Route: 048
     Dates: start: 20000101, end: 20050801
  4. GABAPENTIN [Suspect]
     Indication: PAIN
     Dosage: 3200 MG (800 MG, 4 IN 1 D), ORAL
     Route: 048
     Dates: start: 20000101, end: 20050801
  5. CLONAZEPAM [Concomitant]
  6. ZANAFLEX (TIZANIDINE HYDROCHLROIDE) [Concomitant]
  7. GEMFIBROZIL [Concomitant]
  8. TRAMADOL HCL [Concomitant]
  9. SOMA (CLARISOPRODOL) [Concomitant]
  10. LORTAB [Concomitant]
  11. TRAZAODONE (TRAZODONE) [Concomitant]
  12. PROMETHAZINE [Concomitant]
  13. ZANTAC [Concomitant]
  14. FUROSEMIDE [Concomitant]
  15. ALL OTHER THERAPEUTIC PRODUCTS (ALL OTHER THERAPEUTIC PRODUCTS) [Concomitant]
  16. OTHER RESPIRATORY SYSTEM PRODUCTS (ALL RESPIRATORY  SYSTEM  PRODUCTS) [Concomitant]
  17. NITROGLYCERIN [Concomitant]

REACTIONS (15)
  - BLOOD PRESSURE INCREASED [None]
  - CRYING [None]
  - DRUG WITHDRAWAL SYNDROME [None]
  - DYSPNOEA EXERTIONAL [None]
  - FEELING ABNORMAL [None]
  - HYPERHIDROSIS [None]
  - INSOMNIA [None]
  - MUSCLE SPASMS [None]
  - MUSCULOSKELETAL DISORDER [None]
  - NAUSEA [None]
  - NERVOUSNESS [None]
  - PAIN [None]
  - PYREXIA [None]
  - STRESS [None]
  - TREATMENT NONCOMPLIANCE [None]
